FAERS Safety Report 21145492 (Version 10)
Quarter: 2023Q2

REPORT INFORMATION
  Report Type: Other
  Country: TR (occurrence: None)
  Receive Date: 20220729
  Receipt Date: 20230622
  Transmission Date: 20230721
  Serious: No
  Sender: FDA-Public Use
  Company Number: TR-ROCHE-3147673

PATIENT
  Age: 45 Year
  Sex: Female
  Weight: 52 kg

DRUGS (5)
  1. OCRELIZUMAB [Suspect]
     Active Substance: OCRELIZUMAB
     Indication: Relapsing-remitting multiple sclerosis
     Dosage: 21/JAN/2019 (250 ML)
     Route: 042
     Dates: start: 20190102, end: 20190102
  2. OCRELIZUMAB [Suspect]
     Active Substance: OCRELIZUMAB
     Dosage: 20/JUL/2019, 19/JAN/2020, 20/JUL/2020, 15/JAN/2021,13/JUL/2021, 06/JAN/2022, 05/JUL/2022
     Route: 042
     Dates: start: 20230116, end: 20230116
  3. METHYLPREDNISOLONE [Concomitant]
     Active Substance: METHYLPREDNISOLONE
     Route: 042
     Dates: start: 20220705, end: 20220705
  4. PHENIRAMINE [Concomitant]
     Active Substance: PHENIRAMINE
     Dosage: 1 AMPULE
     Route: 042
     Dates: start: 20220705, end: 20220705
  5. PANTOPRAZOLE [Concomitant]
     Active Substance: PANTOPRAZOLE
     Route: 042
     Dates: start: 20220705, end: 20220705

REACTIONS (5)
  - Nausea [Recovered/Resolved]
  - COVID-19 [Recovered/Resolved]
  - Headache [Recovered/Resolved]
  - Diarrhoea [Recovered/Resolved]
  - Dizziness [Recovered/Resolved]

NARRATIVE: CASE EVENT DATE: 20220713
